FAERS Safety Report 17691721 (Version 2)
Quarter: 2020Q2

REPORT INFORMATION
  Report Type: Report from Study
  Country: US (occurrence: US)
  Receive Date: 20200422
  Receipt Date: 20200424
  Transmission Date: 20200714
  Serious: Yes (Death, Hospitalization)
  Sender: FDA-Public Use
  Company Number: US-ASTRAZENECA-2020SE53408

PATIENT
  Sex: Male

DRUGS (1)
  1. LYNPARZA [Suspect]
     Active Substance: OLAPARIB
     Indication: BONE CANCER
     Dosage: 2 TABLETS TWICE A DAY
     Route: 048
     Dates: start: 20191121

REACTIONS (3)
  - Complication associated with device [Not Recovered/Not Resolved]
  - Coronavirus infection [Fatal]
  - Haemorrhage urinary tract [Not Recovered/Not Resolved]
